FAERS Safety Report 6699267-9 (Version None)
Quarter: 2010Q2

REPORT INFORMATION
  Report Type: 
  Country: None (occurrence: None)
  Receive Date: 20100427
  Receipt Date: 20100413
  Transmission Date: 20101027
  Serious: Yes (Hospitalization)
  Sender: FDA-Public Use
  Company Number: NL-MEDIMMUNE-MEDI-0011112

PATIENT
  Sex: Male

DRUGS (3)
  1. SYNAGIS [Suspect]
     Route: 030
     Dates: start: 20091001, end: 20100316
  2. SYNAGIS [Suspect]
     Route: 030
     Dates: start: 20100413
  3. SALBUTAMOL [Concomitant]

REACTIONS (10)
  - ASTHENIA [None]
  - ATELECTASIS [None]
  - CYANOSIS [None]
  - DEHYDRATION [None]
  - DIARRHOEA [None]
  - DYSPNOEA [None]
  - GASTROENTERITIS VIRAL [None]
  - PYREXIA [None]
  - VOMITING [None]
  - WEIGHT DECREASED [None]
